FAERS Safety Report 14375972 (Version 1)
Quarter: 2018Q1

REPORT INFORMATION
  Report Type: Spontaneous
  Country: US (occurrence: US)
  Receive Date: 20180111
  Receipt Date: 20180111
  Transmission Date: 20180509
  Serious: Yes (Life-Threatening, Hospitalization, Other)
  Sender: FDA-Public Use
  Company Number: US-BAYER-2018-001343

PATIENT
  Age: 21 Year
  Sex: Female

DRUGS (2)
  1. SALICYLIC ACID. [Concomitant]
     Active Substance: SALICYLIC ACID
     Indication: SUICIDE ATTEMPT
  2. PARACETAMOL [Suspect]
     Active Substance: ACETAMINOPHEN
     Indication: SUICIDE ATTEMPT
     Dosage: UNK
     Route: 048

REACTIONS (4)
  - Encephalopathy [Unknown]
  - Methaemoglobinaemia [Recovering/Resolving]
  - Acute respiratory failure [Recovering/Resolving]
  - Hepatic function abnormal [Recovered/Resolved]
